FAERS Safety Report 6115038-6 (Version None)
Quarter: 2009Q1

REPORT INFORMATION
  Report Type: 
  Country: None (occurrence: None)
  Receive Date: 20090313
  Receipt Date: 20090306
  Transmission Date: 20090719
  Serious: Yes (Other)
  Sender: FDA-Public Use
  Company Number: A0772868A

PATIENT
  Age: 53 Year
  Sex: Male
  Weight: 125 kg

DRUGS (6)
  1. AVANDIA [Suspect]
     Indication: DIABETES MELLITUS
     Dosage: 8MG PER DAY
     Route: 048
     Dates: start: 20031101, end: 20070701
  2. METFORMIN HCL [Concomitant]
  3. VYTORIN [Concomitant]
  4. ZOCOR [Concomitant]
  5. COREG [Concomitant]
  6. ALTACE [Concomitant]

REACTIONS (1)
  - MYOCARDIAL INFARCTION [None]
